FAERS Safety Report 9330628 (Version 2)
Quarter: 2013Q2

REPORT INFORMATION
  Report Type: Report from Study
  Country: JP (occurrence: JP)
  Receive Date: 20130605
  Receipt Date: 20130612
  Transmission Date: 20140414
  Serious: Yes (Hospitalization)
  Sender: FDA-Public Use
  Company Number: JP-B.I. PHARMACEUTICALS,INC./RIDGEFIELD-2013-BI-15736GD

PATIENT
  Sex: 0

DRUGS (2)
  1. DIPYRIDAMOLE [Suspect]
  2. ASPIRIN [Suspect]

REACTIONS (2)
  - Cerebral haemorrhage [Unknown]
  - Cerebral haematoma [Unknown]
